FAERS Safety Report 5929465-0 (Version None)
Quarter: 2008Q4

REPORT INFORMATION
  Report Type: 
  Country: None (occurrence: None)
  Receive Date: 20081024
  Receipt Date: 20081021
  Transmission Date: 20090506
  Serious: Yes (Disabling)
  Sender: FDA-Public Use
  Company Number: FR-AVENTIS-200813183FR

PATIENT
  Age: 69 Year
  Sex: Female
  Weight: 59 kg

DRUGS (10)
  1. FLAGYL [Suspect]
     Indication: BRAIN ABSCESS
     Route: 048
     Dates: start: 20051206, end: 20060317
  2. ROCEPHIN [Concomitant]
     Indication: BRAIN ABSCESS
     Route: 030
     Dates: start: 20051206, end: 20060117
  3. CEFOTAXIME SODIUM [Concomitant]
     Indication: BRAIN ABSCESS
     Route: 048
     Dates: start: 20051206, end: 20060117
  4. RIVOTRIL [Concomitant]
     Route: 048
     Dates: start: 20060405, end: 20060901
  5. LEXOMIL [Concomitant]
     Indication: STRESS
     Route: 048
     Dates: start: 20051206
  6. COVERSYL                           /00790701/ [Concomitant]
     Route: 048
     Dates: start: 20051028
  7. NEURONTIN [Concomitant]
     Route: 048
     Dates: start: 20051206
  8. TRILEPTAL [Concomitant]
     Route: 048
     Dates: start: 20060901, end: 20060910
  9. LYRICA [Concomitant]
     Route: 048
     Dates: start: 20070803, end: 20070920
  10. SKENAN [Concomitant]

REACTIONS (6)
  - GAIT DISTURBANCE [None]
  - OEDEMA PERIPHERAL [None]
  - PAIN [None]
  - PARAESTHESIA [None]
  - POLYNEUROPATHY [None]
  - SENSORY DISTURBANCE [None]
